FAERS Safety Report 5935158-6 (Version None)
Quarter: 2008Q4

REPORT INFORMATION
  Report Type: 
  Country: None (occurrence: None)
  Receive Date: 20081028
  Receipt Date: 20081013
  Transmission Date: 20090506
  Serious: Yes (Death, Hospitalization)
  Sender: FDA-Public Use
  Company Number: FLUO20080008

PATIENT
  Age: 58 Year
  Sex: 0

DRUGS (5)
  1. FLUOROURACIL [Suspect]
     Indication: COLON CANCER
     Dosage: 1000 MG/M2, 1 IN 2 WK, INTRAVENOUS
     Route: 042
     Dates: start: 20080416, end: 20080903
  2. CETUXIMAB [Suspect]
     Indication: COLON CANCER
     Dosage: 250 MG/M2, 1 IN 1 WK; INTRAVENOUS, 400 MG/M2, ONCE
     Route: 042
     Dates: start: 20080416, end: 20080416
  3. CETUXIMAB [Suspect]
     Indication: COLON CANCER
     Dosage: 250 MG/M2, 1 IN 1 WK; INTRAVENOUS, 400 MG/M2, ONCE
     Route: 042
     Dates: start: 20080401, end: 20080902
  4. OXALIPLATIN [Suspect]
     Indication: COLON CANCER
     Dosage: 85 MG/M2, 1 IN 2 WK; INTRAVENOUS
     Route: 042
     Dates: start: 20080416, end: 20080902
  5. FOLINIC ACID [Suspect]
     Indication: COLON CANCER
     Dosage: 100 MG/M2, 1 IN 2 WK; INTRAVENOUS
     Route: 042
     Dates: start: 20080414, end: 20080903

REACTIONS (3)
  - LEUKOPENIA [None]
  - NEUTROPENIA [None]
  - PNEUMONIA [None]
